FAERS Safety Report 11884111 (Version 1)
Quarter: 2015Q4

REPORT INFORMATION
  Report Type: Spontaneous
  Country: None (occurrence: None)
  Receive Date: 20151231
  Receipt Date: 20151231
  Transmission Date: 20160305
  Serious: Yes (Life-Threatening, Hospitalization)
  Sender: FDA-Public Use
  Company Number: None

PATIENT
  Age: 77 Year
  Sex: Female
  Weight: 56.7 kg

DRUGS (17)
  1. APIXABAN 5 MG [Suspect]
     Active Substance: APIXABAN
     Indication: ATRIAL FIBRILLATION
     Route: 048
  2. DONEPEZIL. [Concomitant]
     Active Substance: DONEPEZIL
  3. GUAIFENESIN ER [Concomitant]
     Active Substance: GUAIFENESIN
  4. AMITRYPTYLINE ACCORD [Concomitant]
     Active Substance: AMITRIPTYLINE
  5. POTASSIUM CHLORIDE. [Concomitant]
     Active Substance: POTASSIUM CHLORIDE
  6. FUROSEMIDE. [Concomitant]
     Active Substance: FUROSEMIDE
  7. MVI [Concomitant]
     Active Substance: VITAMINS
  8. LEVOTHYROXINE. [Concomitant]
     Active Substance: LEVOTHYROXINE
  9. PANTOPRAZOLE [Concomitant]
     Active Substance: PANTOPRAZOLE SODIUM
  10. APAP [Concomitant]
     Active Substance: ACETAMINOPHEN
  11. AMIODARONE [Concomitant]
     Active Substance: AMIODARONE
  12. PROMETHAZINE/DEXTROMETHORPHAN [Concomitant]
  13. ATORVASTATIN [Concomitant]
     Active Substance: ATORVASTATIN
  14. METOPROLOL [Concomitant]
     Active Substance: METOPROLOL
  15. APIXABAN 5 MG [Suspect]
     Active Substance: APIXABAN
     Indication: CEREBROVASCULAR ACCIDENT
     Route: 048
  16. ASCORBIC ACID. [Concomitant]
     Active Substance: ASCORBIC ACID
  17. ESTROGENS CONJUGATED [Concomitant]
     Active Substance: ESTROGENS, CONJUGATED

REACTIONS (3)
  - Headache [None]
  - Dizziness [None]
  - Cerebellar haemorrhage [None]

NARRATIVE: CASE EVENT DATE: 20151230
